FAERS Safety Report 14316022 (Version 2)
Quarter: 2018Q1

REPORT INFORMATION
  Report Type: Report from Study
  Country: IL (occurrence: IL)
  Receive Date: 20171221
  Receipt Date: 20180110
  Transmission Date: 20180509
  Serious: Yes (Other)
  Sender: FDA-Public Use
  Company Number: IL-AMGEN-ISRSL2017187629

PATIENT
  Age: 82 Year
  Sex: Female

DRUGS (4)
  1. ELTROXIN [Concomitant]
     Active Substance: LEVOTHYROXINE
     Indication: HYPOTHYROIDISM
  2. VITAMIN D [Concomitant]
     Active Substance: CHOLECALCIFEROL
  3. PROLIA [Suspect]
     Active Substance: DENOSUMAB
     Indication: OSTEOPOROSIS
     Dosage: UNK UNK, Q6MO
     Route: 065
     Dates: start: 201605
  4. PROLIA [Suspect]
     Active Substance: DENOSUMAB
     Indication: SPINAL COMPRESSION FRACTURE

REACTIONS (4)
  - Polymyalgia rheumatica [Recovered/Resolved]
  - Gingival swelling [Unknown]
  - Tooth extraction [Unknown]
  - Off label use [Unknown]

NARRATIVE: CASE EVENT DATE: 201605
